FAERS Safety Report 25759431 (Version 3)
Quarter: 2025Q3

REPORT INFORMATION
  Report Type: Report from Study
  Country: CA (occurrence: CA)
  Receive Date: 20250904
  Receipt Date: 20250926
  Transmission Date: 20251021
  Serious: Yes (Other)
  Sender: ABBVIE
  Company Number: CA-ABBVIE-6441516

PATIENT
  Age: 60 Year
  Sex: Male

DRUGS (1)
  1. RINVOQ [Suspect]
     Active Substance: UPADACITINIB
     Indication: Rheumatoid arthritis
     Dosage: FORM STRENGTH: 15 MG?DOSE FORM: PROLONGED RELEASE TABLET
     Route: 048
     Dates: start: 20250822, end: 20250829

REACTIONS (3)
  - Cataract [Unknown]
  - Headache [Unknown]
  - Ocular procedural complication [Unknown]

NARRATIVE: CASE EVENT DATE: 20250801
